FAERS Safety Report 5568496-X (Version None)
Quarter: 2007Q4

REPORT INFORMATION
  Report Type: 
  Country: None (occurrence: None)
  Receive Date: 20071220
  Receipt Date: 20071214
  Transmission Date: 20080405
  Serious: Yes (Other)
  Sender: FDA-Public Use
  Company Number: ES-ROCHE-374727

PATIENT
  Age: 55 Year
  Sex: Male
  Weight: 82.8 kg

DRUGS (14)
  1. DACLIZUMAB [Suspect]
     Route: 042
     Dates: start: 20040306
  2. DACLIZUMAB [Suspect]
     Route: 042
     Dates: end: 20040503
  3. MYCOPHENOLATE MOFETIL [Suspect]
     Route: 048
     Dates: start: 20040306, end: 20040709
  4. TACROLIMUS [Suspect]
     Route: 048
     Dates: start: 20040306
  5. TACROLIMUS [Suspect]
     Route: 048
     Dates: start: 20040527
  6. PREDNISONE [Suspect]
     Indication: IMMUNOSUPPRESSION
     Route: 048
     Dates: start: 20040514
  7. PREDNISONE [Suspect]
     Route: 048
     Dates: start: 20040308
  8. SULFAMETHOXAZOLE + TRIMETHOPRIM [Concomitant]
     Dosage: DOSE PROVIDED AS 80/400 MG.
     Route: 048
     Dates: start: 20040610
  9. RANITIDINE HCL [Concomitant]
     Route: 048
     Dates: start: 20040308
  10. DOXAZOSIN MESYLATE [Concomitant]
     Route: 048
     Dates: start: 20040521
  11. BISOPROLOL [Concomitant]
     Route: 048
     Dates: start: 20040311
  12. AMLODIPINO [Concomitant]
     Route: 048
     Dates: start: 20040614
  13. PRAVASTATIN [Concomitant]
     Route: 048
     Dates: start: 20040412
  14. ALOPURINOL [Concomitant]
     Route: 048
     Dates: start: 20040412

REACTIONS (1)
  - HUMAN POLYOMAVIRUS INFECTION [None]
